FAERS Safety Report 24855913 (Version 1)
Quarter: 2025Q1

REPORT INFORMATION
  Report Type: Spontaneous
  Country: AU (occurrence: AU)
  Receive Date: 20250117
  Receipt Date: 20250117
  Transmission Date: 20250409
  Serious: Yes (Other)
  Sender: TEVA
  Company Number: AU-TEVA-VS-3284740

PATIENT
  Age: 51 Year
  Sex: Female

DRUGS (4)
  1. COPAXONE [Suspect]
     Active Substance: GLATIRAMER ACETATE
     Indication: Multiple sclerosis
     Route: 065
  2. COPAXONE [Suspect]
     Active Substance: GLATIRAMER ACETATE
     Indication: Multiple sclerosis
     Route: 065
  3. VENTOLIN [Concomitant]
     Active Substance: ALBUTEROL SULFATE
     Indication: Product used for unknown indication
     Route: 065
  4. FENTANYL [Concomitant]
     Active Substance: FENTANYL
     Indication: Product used for unknown indication
     Route: 065

REACTIONS (10)
  - Anaphylactic reaction [Unknown]
  - Pain [Unknown]
  - Injection site rash [Unknown]
  - Diarrhoea [Unknown]
  - Near death experience [Unknown]
  - Vomiting [Unknown]
  - Drug tolerance [Unknown]
  - Cough [Unknown]
  - Anxiety [Unknown]
  - Dysstasia [Unknown]
